FAERS Safety Report 5803442-2 (Version None)
Quarter: 2008Q2

REPORT INFORMATION
  Report Type: 
  Country: None (occurrence: None)
  Receive Date: 20080627
  Receipt Date: 20080327
  Transmission Date: 20081010
  Serious: Yes (Other)
  Sender: FDA-Public Use
  Company Number: 46716

PATIENT
  Age: 1 Year
  Sex: Male
  Weight: 6 kg

DRUGS (6)
  1. VECURONIUM BROMIDE [Suspect]
     Indication: SEDATIVE THERAPY
     Dosage: CONTINOUS IV INFUSION
     Route: 042
     Dates: start: 20080326
  2. HEPARIN [Concomitant]
  3. INTERMITTENT RANITIDINE [Concomitant]
  4. CEFAZOLIN [Concomitant]
  5. POTASSIUM CHLORIDE [Concomitant]
  6. ISOPROTERENOL [Concomitant]

REACTIONS (1)
  - DRUG INEFFECTIVE [None]
